FAERS Safety Report 8811667 (Version 1)
Quarter: 2012Q4

REPORT INFORMATION
  Report Type: Spontaneous
  Country: US (occurrence: None)
  Receive Date: 20120925
  Receipt Date: 20120925
  Transmission Date: 20130627
  Serious: Yes (Hospitalization)
  Sender: FDA-Public Use
  Company Number: None

PATIENT
  Age: 73 Year
  Sex: Male
  Weight: 72.4 kg

DRUGS (5)
  1. PRADAXA [Suspect]
     Indication: PAROXYSMAL ATRIAL FIBRILLATION
     Route: 048
  2. AMLODIPINE [Concomitant]
  3. CLONIDINE [Concomitant]
  4. HYDROCODONE-APAP [Concomitant]
  5. TAMSULOSIN HCL [Concomitant]

REACTIONS (2)
  - Proctalgia [None]
  - Rectal haemorrhage [None]
